FAERS Safety Report 5534974-2 (Version None)
Quarter: 2007Q4

REPORT INFORMATION
  Report Type: 
  Country: None (occurrence: None)
  Receive Date: 20071120
  Receipt Date: 20070831
  Transmission Date: 20080405
  Serious: No
  Sender: FDA-Public Use
  Company Number: WAES 0709USA00035

PATIENT
  Age: 66 Year
  Sex: Female

DRUGS (7)
  1. JANUVIA [Suspect]
     Indication: TYPE 2 DIABETES MELLITUS
     Dosage: 100 MG/DAILY/PO
     Route: 048
     Dates: start: 20070715, end: 20070821
  2. ATROVENT [Concomitant]
  3. LASIX [Concomitant]
  4. PULMICORT [Concomitant]
  5. ALBUTEROL [Concomitant]
  6. POTASSIUM (UNSPECIFIED) [Concomitant]
  7. THEOPHYLLINE [Concomitant]

REACTIONS (3)
  - DIARRHOEA [None]
  - FLATULENCE [None]
  - NAUSEA [None]
